FAERS Safety Report 6473902-2 (Version None)
Quarter: 2009Q4

REPORT INFORMATION
  Report Type: 
  Country: None (occurrence: None)
  Receive Date: 20091204
  Receipt Date: 20090821
  Transmission Date: 20100525
  Serious: Yes (Other)
  Sender: FDA-Public Use
  Company Number: A0801445A

PATIENT
  Age: 25 Year
  Sex: Female

DRUGS (3)
  1. LAMICTAL [Suspect]
     Dosage: 200MG UNKNOWN
     Route: 048
  2. LAMICTAL [Suspect]
     Route: 048
  3. LAMICTAL [Suspect]
     Route: 048

REACTIONS (2)
  - HEADACHE [None]
  - MIGRAINE [None]
